FAERS Safety Report 9259347 (Version 1)
Quarter: 2013Q2

REPORT INFORMATION
  Report Type: Report from Study
  Country: CN (occurrence: CN)
  Receive Date: 20130427
  Receipt Date: 20130427
  Transmission Date: 20140414
  Serious: Yes (Other)
  Sender: FDA-Public Use
  Company Number: CN-ROCHE-1216450

PATIENT
  Sex: Male
  Weight: 59 kg

DRUGS (6)
  1. CELLCEPT [Suspect]
     Indication: RENAL TRANSPLANT
     Route: 048
     Dates: start: 20000110, end: 2012
  2. CELLCEPT [Suspect]
     Route: 048
     Dates: start: 2012
  3. BERBERINE HYDROCHLORIDE [Suspect]
     Indication: WHITE BLOOD CELL COUNT DECREASED
     Route: 048
     Dates: start: 2012, end: 2012
  4. BERBERINE HYDROCHLORIDE [Suspect]
     Route: 048
     Dates: start: 2012
  5. CICLOSPORIN [Concomitant]
     Indication: RENAL TRANSPLANT
     Route: 048
     Dates: start: 20000110
  6. PREDNISOLONE ACETATE [Concomitant]
     Indication: RENAL TRANSPLANT
     Route: 048
     Dates: start: 20000110

REACTIONS (5)
  - White blood cell count decreased [Not Recovered/Not Resolved]
  - Blood creatinine decreased [Not Recovered/Not Resolved]
  - Headache [Not Recovered/Not Resolved]
  - Decreased appetite [Not Recovered/Not Resolved]
  - Weight decreased [Not Recovered/Not Resolved]
